FAERS Safety Report 22944741 (Version 4)
Quarter: 2023Q4

REPORT INFORMATION
  Report Type: Report from Study
  Country: CN (occurrence: CN)
  Receive Date: 20230914
  Receipt Date: 20231017
  Transmission Date: 20240109
  Serious: Yes (Hospitalization)
  Sender: FDA-Public Use
  Company Number: CN-DSRSG-DS8201AU306_86036003_000001

PATIENT
  Age: 65 Year
  Sex: Male
  Weight: 77 kg

DRUGS (18)
  1. FAM-TRASTUZUMAB DERUXTECAN-NXKI [Suspect]
     Active Substance: FAM-TRASTUZUMAB DERUXTECAN-NXKI
     Indication: HER2 positive gastric cancer
     Dosage: 6.4 MG/KG, CYCLIC (TOTAL DOSE 500 MG)
     Route: 042
     Dates: start: 20230825, end: 20230825
  2. PLATELET YANGSHENGKANGSU [Concomitant]
     Indication: Platelet count decreased
     Dosage: 3 GRAIN, QD
     Route: 048
     Dates: start: 2023, end: 202308
  3. VITAMIN D+K [Concomitant]
     Indication: Product used for unknown indication
     Dosage: 1 DF, QD
     Route: 048
     Dates: start: 2023, end: 202308
  4. HERBALS\DIAMMONIUM GLYCYRRHIZINATE [Concomitant]
     Active Substance: HERBALS\DIAMMONIUM GLYCYRRHIZINATE
     Indication: Hepatic function abnormal
     Dosage: 150 MG, TID
     Route: 048
     Dates: start: 2023, end: 202308
  5. MEMANTINE HYDROCHLORIDE [Concomitant]
     Active Substance: MEMANTINE HYDROCHLORIDE
     Indication: Amnesia
     Dosage: 10 MG, QD
     Route: 048
     Dates: start: 2023, end: 202308
  6. DIYUSHENG WHITE [Concomitant]
     Indication: White blood cell count decreased
     Dosage: 0.2 G, TID
     Route: 048
     Dates: start: 2023, end: 202308
  7. CHLORPHENIRAMINE MALEATE [Concomitant]
     Active Substance: CHLORPHENIRAMINE MALEATE
     Indication: Dermatitis
     Dosage: 1 DF, QD
     Route: 048
     Dates: start: 2023, end: 202308
  8. AUFREY [Concomitant]
     Indication: Dermatitis
     Dosage: UNK (QUANTUM SATIS), AS NEEDED
     Route: 062
     Dates: start: 2023
  9. GRANULOCYTE COLONY-STIMULATING FACTOR NOS [Concomitant]
     Active Substance: GRANULOCYTE COLONY-STIMULATING FACTOR NOS
     Indication: White blood cell count decreased
     Dosage: 300 UG, QD
     Route: 030
     Dates: start: 20230810, end: 20230815
  10. THROMBOPOIETIN [Concomitant]
     Active Substance: THROMBOPOIETIN
     Indication: Platelet count decreased
     Dosage: 15000 U, QD
     Route: 030
     Dates: start: 20230810, end: 20230815
  11. DEXAMETHASONE SODIUM PHOSPHATE [Concomitant]
     Active Substance: DEXAMETHASONE SODIUM PHOSPHATE
     Indication: Premedication
     Dosage: 10 MG, QD
     Route: 042
     Dates: start: 20230825, end: 20230825
  12. DIPHENHYDRAMINE HYDROCHLORIDE [Concomitant]
     Active Substance: DIPHENHYDRAMINE HYDROCHLORIDE
     Indication: Premedication
     Dosage: 20 MG, QD
     Route: 030
     Dates: start: 20230825, end: 20230825
  13. TROPISETRON HYDROCHLORIDE AND GLUCOSE [Concomitant]
     Indication: Premedication
     Dosage: 100 ML, QD
     Route: 042
     Dates: start: 20230825, end: 20230825
  14. ESOMEPRAZOLE MAGNESIUM [Concomitant]
     Active Substance: ESOMEPRAZOLE\ESOMEPRAZOLE MAGNESIUM\ESOMEPRAZOLE MAGNESIUM DIHYDRATE
     Indication: Premedication
     Dosage: 20 MG, QD
     Route: 048
     Dates: start: 20230825, end: 20230825
  15. ESOMEPRAZOLE MAGNESIUM [Concomitant]
     Active Substance: ESOMEPRAZOLE\ESOMEPRAZOLE MAGNESIUM\ESOMEPRAZOLE MAGNESIUM DIHYDRATE
     Indication: Nausea
     Dosage: 20 MG, TID
     Route: 048
     Dates: start: 20230901
  16. APREPITANT [Concomitant]
     Active Substance: APREPITANT
     Indication: Premedication
     Dosage: 125 MG, QD
     Route: 048
     Dates: start: 20230825, end: 20230825
  17. REBAMIPIDE [Concomitant]
     Active Substance: REBAMIPIDE
     Indication: Nausea
     Dosage: 0.1 G, TID
     Route: 048
     Dates: start: 20230901
  18. SUCRALFATE [Concomitant]
     Active Substance: SUCRALFATE
     Indication: Nausea
     Dosage: 5 ML, BID
     Route: 048
     Dates: start: 20230901

REACTIONS (1)
  - Myelosuppression [Recovered/Resolved]

NARRATIVE: CASE EVENT DATE: 20230907
